FAERS Safety Report 20095178 (Version 1)
Quarter: 2021Q4

REPORT INFORMATION
  Report Type: Spontaneous
  Country: US (occurrence: None)
  Receive Date: 20211122
  Receipt Date: 20211122
  Transmission Date: 20220304
  Serious: No
  Sender: FDA-Public Use
  Company Number: 2021A809764

PATIENT
  Age: 39 Year
  Sex: Female

DRUGS (2)
  1. OMEPRAZOLE [Interacting]
     Active Substance: OMEPRAZOLE
     Dosage: UNKNOWN
     Route: 048
  2. IBRANCE [Interacting]
     Active Substance: PALBOCICLIB
     Route: 048
     Dates: start: 20210816, end: 20211110

REACTIONS (1)
  - Drug interaction [Unknown]
